FAERS Safety Report 14527595 (Version 3)
Quarter: 2019Q2

REPORT INFORMATION
  Report Type: Spontaneous
  Country: US (occurrence: US)
  Receive Date: 20180213
  Receipt Date: 20190507
  Transmission Date: 20190711
  Serious: No
  Sender: FDA-Public Use
  Company Number: US-PFIZER INC-2017437328

PATIENT
  Age: 60 Year
  Sex: Female

DRUGS (5)
  1. ADVIL [Suspect]
     Active Substance: IBUPROFEN
     Indication: INFLAMMATION
     Dosage: 1 DF, 2 HOURS BEFORE INFUSION
  2. ADVIL [Suspect]
     Active Substance: IBUPROFEN
     Indication: PAIN
     Dosage: UNK, HAS TAKEN AFTERWARDS
  3. ADVIL [Suspect]
     Active Substance: IBUPROFEN
     Dosage: UNK, AS NEEDED
  4. CLARITIN [Concomitant]
     Active Substance: LORATADINE
     Indication: HYPERSENSITIVITY
     Dosage: UNK, AS NEEDED
  5. CLARITIN [Concomitant]
     Active Substance: LORATADINE
     Indication: PROPHYLAXIS
     Dosage: 1 DF, UNK

REACTIONS (3)
  - Intentional product misuse [Unknown]
  - Pain [Unknown]
  - Drug ineffective [Unknown]
